FAERS Safety Report 24812873 (Version 1)
Quarter: 2025Q1

REPORT INFORMATION
  Report Type: Spontaneous
  Country: TR (occurrence: TR)
  Receive Date: 20250107
  Receipt Date: 20250107
  Transmission Date: 20250408
  Serious: Yes (Death, Other)
  Sender: NOVARTIS
  Company Number: TR-002147023-NVSC2025TR001379

PATIENT
  Age: 76 Year
  Sex: Male

DRUGS (1)
  1. SACUBITRIL\VALSARTAN [Suspect]
     Active Substance: SACUBITRIL\VALSARTAN
     Indication: Cardiac failure
     Dosage: UNK, BID (2 DOSES DAILY)
     Route: 065

REACTIONS (2)
  - Acute pulmonary oedema [Fatal]
  - Death [Fatal]
